FAERS Safety Report 17890279 (Version 50)
Quarter: 2025Q2

REPORT INFORMATION
  Report Type: Report from Study
  Country: US (occurrence: US)
  Receive Date: 20200612
  Receipt Date: 20250603
  Transmission Date: 20250717
  Serious: Yes (Death, Hospitalization, Other)
  Sender: TAKEDA
  Company Number: US-SHIRE-US202019220

PATIENT
  Age: 58 Year
  Sex: Male

DRUGS (7)
  1. HEMOFIL [Suspect]
     Active Substance: ANTIHEMOPHILIC FACTOR HUMAN
     Indication: Haemorrhage
  2. HEMOFIL [Suspect]
     Active Substance: ANTIHEMOPHILIC FACTOR HUMAN
     Dosage: 3360 INTERNATIONAL UNIT, QD
  3. HEMOFIL [Suspect]
     Active Substance: ANTIHEMOPHILIC FACTOR HUMAN
  4. HEMOFIL [Suspect]
     Active Substance: ANTIHEMOPHILIC FACTOR HUMAN
  5. HEMOFIL [Suspect]
     Active Substance: ANTIHEMOPHILIC FACTOR HUMAN
  6. HEMOFIL [Suspect]
     Active Substance: ANTIHEMOPHILIC FACTOR HUMAN
  7. HEMOFIL [Suspect]
     Active Substance: ANTIHEMOPHILIC FACTOR HUMAN

REACTIONS (25)
  - Death [Fatal]
  - Osteomyelitis [Not Recovered/Not Resolved]
  - Anxiety [Unknown]
  - Carditis [Unknown]
  - Pleural effusion [Unknown]
  - Haematoma [Not Recovered/Not Resolved]
  - Blood urine present [Unknown]
  - Pericardial effusion [Unknown]
  - Pericarditis [Unknown]
  - Haemarthrosis [Unknown]
  - Groin abscess [Recovered/Resolved]
  - Haemorrhage [Recovering/Resolving]
  - Spontaneous haemorrhage [Unknown]
  - Muscle haemorrhage [Unknown]
  - Gastrointestinal haemorrhage [Not Recovered/Not Resolved]
  - Arthralgia [Not Recovered/Not Resolved]
  - Musculoskeletal discomfort [Not Recovered/Not Resolved]
  - Surgical failure [Unknown]
  - Swelling [Unknown]
  - Joint injury [Unknown]
  - Pain [Unknown]
  - Joint swelling [Unknown]
  - Erythema [Unknown]
  - Full blood count decreased [Unknown]
  - Haemoglobin decreased [Unknown]

NARRATIVE: CASE EVENT DATE: 20200607
